FAERS Safety Report 8921303 (Version 1)
Quarter: 2012Q4

REPORT INFORMATION
  Report Type: 
  Country: CN (occurrence: CN)
  Receive Date: 20121122
  Receipt Date: 20121122
  Transmission Date: 20130627
  Serious: Yes (Death, Hospitalization, Other)
  Sender: FDA-Public Use
  Company Number: CN-BAXTER-2012BAX024956

PATIENT

DRUGS (5)
  1. HOLOXAN [Suspect]
     Indication: T-CELL LYMPHOMA
     Route: 065
  2. DEXAMETHASONE [Suspect]
     Indication: T-CELL LYMPHOMA
     Route: 065
  3. METHOTREXATE [Suspect]
     Indication: T-CELL LYMPHOMA
     Route: 065
  4. L-ASPARAGINASE [Suspect]
     Indication: T-CELL LYMPHOMA
     Route: 065
  5. ETOPOSIDE [Suspect]
     Indication: T-CELL LYMPHOMA
     Route: 065

REACTIONS (2)
  - Sepsis [Fatal]
  - Neutropenia [Unknown]
